FAERS Safety Report 8026193-5 (Version None)
Quarter: 2012Q1

REPORT INFORMATION
  Report Type: 
  Country: None (occurrence: None)
  Receive Date: 20120105
  Receipt Date: 20110209
  Transmission Date: 20120608
  Serious: No
  Sender: FDA-Public Use
  Company Number: US-ABBOTT-11P-163-0704942-00

PATIENT
  Sex: Female
  Weight: 106.69 kg

DRUGS (7)
  1. B50 COMPLEX [Suspect]
     Indication: VITAMIN SUPPLEMENTATION
  2. LEVOTHYROXINE SODIUM [Suspect]
     Indication: HYPOTHYROIDISM
     Dosage: GENERIC
     Dates: start: 20100101, end: 20100101
  3. CALCIUM W/MAGNESIUM/ZINC [Suspect]
     Indication: VITAMIN SUPPLEMENTATION
     Dosage: COMBINATION SUPPLEMENT
  4. VITAMIN D [Suspect]
     Indication: VITAMIN SUPPLEMENTATION
     Dates: start: 20110206
  5. SYNTHROID [Suspect]
     Indication: HYPOTHYROIDISM
     Dosage: TAKES DOSE IN THE EVENING
     Dates: start: 20101101
  6. VITAMIN C WITH BIOFLAVINOIDS [Suspect]
     Indication: VITAMIN SUPPLEMENTATION
  7. VITAMIN D [Suspect]

REACTIONS (3)
  - SKIN ODOUR ABNORMAL [None]
  - NOSE DEFORMITY [None]
  - TOOTH FRACTURE [None]
